FAERS Safety Report 11173297 (Version 1)
Quarter: 2015Q2

REPORT INFORMATION
  Report Type: Spontaneous
  Country: GB (occurrence: GB)
  Receive Date: 20150608
  Receipt Date: 20150608
  Transmission Date: 20150821
  Serious: Yes (Other)
  Sender: FDA-Public Use
  Company Number: PHFR2015GB004347

PATIENT
  Sex: Male

DRUGS (1)
  1. ZOMETA [Suspect]
     Active Substance: ZOLEDRONIC ACID
     Indication: PRODUCT USED FOR UNKNOWN INDICATION
     Dosage: UNK
     Route: 065

REACTIONS (7)
  - Arthritis [Unknown]
  - Atrial fibrillation [Unknown]
  - Fatigue [Unknown]
  - Neuropathy peripheral [Unknown]
  - Nocturia [Unknown]
  - Angina unstable [Unknown]
  - Dyspnoea exertional [Unknown]
